FAERS Safety Report 18931614 (Version 1)
Quarter: 2021Q1

REPORT INFORMATION
  Report Type: Spontaneous
  Country: US (occurrence: US)
  Receive Date: 20210223
  Receipt Date: 20210223
  Transmission Date: 20210420
  Serious: No
  Sender: FDA-Public Use
  Company Number: US-IGSA-SR10010235

PATIENT
  Age: 65 Year
  Sex: Female
  Weight: 52 kg

DRUGS (13)
  1. ZANTAC [Concomitant]
     Active Substance: RANITIDINE HYDROCHLORIDE
  2. LEVOTHYROXINE. [Concomitant]
     Active Substance: LEVOTHYROXINE
  3. NTG [Concomitant]
     Active Substance: NITROGLYCERIN
  4. PROTONIX                           /00661201/ [Concomitant]
     Active Substance: OMEPRAZOLE
  5. XANAX [Concomitant]
     Active Substance: ALPRAZOLAM
  6. ZOCOR [Concomitant]
     Active Substance: SIMVASTATIN
  7. PROLASTIN?C LIQUID [Suspect]
     Active Substance: .ALPHA.1-PROTEINASE INHIBITOR HUMAN
     Indication: ALPHA-1 ANTITRYPSIN DEFICIENCY
     Dosage: 3120 MG, Q.WK.
     Route: 042
     Dates: start: 20200421
  8. ALBUTEROL                          /00139501/ [Concomitant]
     Active Substance: ALBUTEROL
     Route: 055
  9. COUMADIN [Concomitant]
     Active Substance: WARFARIN SODIUM
  10. KLONOPIN [Concomitant]
     Active Substance: CLONAZEPAM
  11. RYTHMOL [Concomitant]
     Active Substance: PROPAFENONE HYDROCHLORIDE
  12. COREG [Concomitant]
     Active Substance: CARVEDILOL
  13. ZOFRAN [Concomitant]
     Active Substance: ONDANSETRON HYDROCHLORIDE

REACTIONS (1)
  - Fatigue [Recovering/Resolving]

NARRATIVE: CASE EVENT DATE: 20200421
